FAERS Safety Report 7691758-7 (Version None)
Quarter: 2011Q3

REPORT INFORMATION
  Report Type: 
  Country: None (occurrence: None)
  Receive Date: 20110818
  Receipt Date: 20110815
  Transmission Date: 20111222
  Serious: Yes (Other)
  Sender: FDA-Public Use
  Company Number: GB-GLAXOSMITHKLINE-B0739883A

PATIENT
  Sex: Female

DRUGS (1)
  1. PAROXETINE HCL [Suspect]
     Indication: PRODUCT USED FOR UNKNOWN INDICATION
     Route: 065

REACTIONS (6)
  - MANIA [None]
  - SUICIDAL IDEATION [None]
  - NIGHTMARE [None]
  - WITHDRAWAL SYNDROME [None]
  - BIPOLAR DISORDER [None]
  - INTENTIONAL SELF-INJURY [None]
